FAERS Safety Report 8596838-X (Version None)
Quarter: 2012Q3

REPORT INFORMATION
  Report Type: 
  Country: None (occurrence: None)
  Receive Date: 20120815
  Receipt Date: 20120808
  Transmission Date: 20120928
  Serious: Yes (Hospitalization)
  Sender: FDA-Public Use
  Company Number: FR-PFIZER INC-2012192843

PATIENT
  Age: 74 Year
  Sex: Male

DRUGS (11)
  1. DICLOFENAC [Concomitant]
  2. VENLAFAXINE HCL [Suspect]
     Dosage: 75 MG, 2X/DAY
     Route: 048
  3. ATENOLOL [Concomitant]
     Dosage: UNK
  4. ALPRAZOLAM [Suspect]
     Dosage: 0.5 MG, 3X/DAY
     Route: 048
  5. PERINDOPRIL ERBUMINE [Suspect]
     Dosage: 2 MG, 1X/DAY
     Route: 048
  6. ACETAMINOPHEN [Concomitant]
  7. ESOMEPRAZOLE SODIUM [Suspect]
     Dosage: 20 MG, 1X/DAY
     Route: 048
  8. TRAMADOL HCL [Suspect]
     Dosage: 100 MG, 2X/DAY
     Route: 048
  9. LYRICA [Suspect]
     Dosage: 25 MG, 2X/DAY
     Route: 048
  10. ZOPICLONE [Suspect]
     Dosage: 7.5 MG, 1X/DAY
     Route: 048
  11. GALVUS [Concomitant]
     Dosage: UNK

REACTIONS (3)
  - FALL [None]
  - SUBDURAL HAEMATOMA [None]
  - CONFUSIONAL STATE [None]
